FAERS Safety Report 14626835 (Version 2)
Quarter: 2018Q1

REPORT INFORMATION
  Report Type: Spontaneous
  Country: AU (occurrence: AU)
  Receive Date: 20180312
  Receipt Date: 20180330
  Transmission Date: 20180509
  Serious: Yes (Hospitalization)
  Sender: FDA-Public Use
  Company Number: AU-SA-2018SA057920

PATIENT
  Age: 43 Year
  Sex: Female

DRUGS (2)
  1. LEMTRADA [Suspect]
     Active Substance: ALEMTUZUMAB
     Route: 041
     Dates: start: 20160515, end: 20160519
  2. LEMTRADA [Suspect]
     Active Substance: ALEMTUZUMAB
     Route: 041
     Dates: start: 20170523, end: 20170525

REACTIONS (12)
  - Platelet count decreased [Unknown]
  - Immune thrombocytopenic purpura [Recovering/Resolving]
  - Fatigue [Unknown]
  - Oral mucosa haematoma [Recovering/Resolving]
  - Nausea [Recovering/Resolving]
  - Lymphocyte count decreased [Unknown]
  - Contusion [Unknown]
  - Mouth haemorrhage [Recovering/Resolving]
  - Blister [Not Recovered/Not Resolved]
  - Epistaxis [Not Recovered/Not Resolved]
  - Menorrhagia [Recovering/Resolving]
  - Headache [Recovering/Resolving]

NARRATIVE: CASE EVENT DATE: 20180118
